FAERS Safety Report 15148877 (Version 1)
Quarter: 2018Q3

REPORT INFORMATION
  Report Type: Report from Study
  Country: US (occurrence: US)
  Receive Date: 20180716
  Receipt Date: 20180716
  Transmission Date: 20181010
  Serious: Yes (Other)
  Sender: FDA-Public Use
  Company Number: US-APOPHARMA-2018AP017198

PATIENT
  Sex: Male
  Weight: 100 kg

DRUGS (1)
  1. FERRIPROX [Suspect]
     Active Substance: DEFERIPRONE
     Indication: HEREDITARY HAEMOCHROMATOSIS
     Dosage: 8.3 MG/KG, TID
     Route: 048
     Dates: start: 20160213, end: 201806

REACTIONS (1)
  - White blood cell count decreased [Recovered/Resolved]
